FAERS Safety Report 9219525 (Version 1)
Quarter: 2013Q2

REPORT INFORMATION
  Report Type: Spontaneous
  Country: RO (occurrence: RO)
  Receive Date: 20130409
  Receipt Date: 20130409
  Transmission Date: 20140414
  Serious: Yes (Hospitalization)
  Sender: FDA-Public Use
  Company Number: RO-009507513-1304ROM003683

PATIENT
  Age: 61 Year
  Sex: Female

DRUGS (5)
  1. REBETOL [Suspect]
     Indication: HEPATITIS C
     Dosage: 200 MG, 5 TIMES DAILY
     Route: 048
     Dates: start: 20130124
  2. REBETOL [Suspect]
     Dosage: UNK [REDUCED DOSE]
     Dates: start: 2013, end: 20130314
  3. REBETOL [Suspect]
     Dosage: UNK [RESTARTED, REDUCED DOSAGE]
     Dates: start: 20130320
  4. PEGINTRON [Suspect]
     Indication: HEPATITIS C
     Dosage: 100 MICROGRAM, QW
     Route: 058
     Dates: start: 20130124, end: 20130314
  5. PEGINTRON [Suspect]
     Dosage: UNK
     Dates: start: 20130319

REACTIONS (3)
  - Anaemia [Not Recovered/Not Resolved]
  - Dizziness [Recovered/Resolved]
  - Malaise [Recovered/Resolved]
